FAERS Safety Report 20020648 (Version 1)
Quarter: 2021Q4

REPORT INFORMATION
  Report Type: Other
  Country: US (occurrence: None)
  Receive Date: 20211101
  Receipt Date: 20211101
  Transmission Date: 20220303
  Serious: Yes (Other)
  Sender: FDA-Public Use
  Company Number: US-ROCHE-2944923

PATIENT
  Sex: Female
  Weight: 88.076 kg

DRUGS (10)
  1. LUCENTIS [Suspect]
     Active Substance: RANIBIZUMAB
     Indication: Neovascular age-related macular degeneration
     Dosage: INJECTION IN THE EYE ;ONGOING: NO
     Route: 065
     Dates: start: 2021, end: 2021
  2. LUCENTIS [Suspect]
     Active Substance: RANIBIZUMAB
     Dosage: YES
     Route: 065
     Dates: start: 2021
  3. LUCENTIS [Suspect]
     Active Substance: RANIBIZUMAB
     Route: 065
     Dates: start: 20210603
  4. ALLOPURINOL [Concomitant]
     Active Substance: ALLOPURINOL
     Dosage: YES
     Route: 048
  5. LEVOTHYROXINE [Concomitant]
     Active Substance: LEVOTHYROXINE
     Route: 048
     Dates: start: 1970
  6. AMIODARONE [Concomitant]
     Active Substance: AMIODARONE
     Dosage: YES
     Route: 048
  7. CRESTOR [Concomitant]
     Active Substance: ROSUVASTATIN CALCIUM
     Dosage: YES
     Route: 048
  8. CARVEDILOL [Concomitant]
     Active Substance: CARVEDILOL
     Dosage: YES
  9. SINGULAIR [Concomitant]
     Active Substance: MONTELUKAST SODIUM
     Dosage: YES
     Route: 048
  10. ASPIRIN [Concomitant]
     Active Substance: ASPIRIN
     Dosage: YES
     Route: 048

REACTIONS (3)
  - Photopsia [Not Recovered/Not Resolved]
  - Off label use [Unknown]
  - Blindness [Not Recovered/Not Resolved]

NARRATIVE: CASE EVENT DATE: 20210101
